FAERS Safety Report 4746274-9 (Version None)
Quarter: 2005Q3

REPORT INFORMATION
  Report Type: 
  Country: None (occurrence: None)
  Receive Date: 20050816
  Receipt Date: 20050722
  Transmission Date: 20060218
  Serious: Yes (Hospitalization)
  Sender: FDA-Public Use
  Company Number: 0507-332

PATIENT
  Age: 1 Day
  Sex: Male
  Weight: 0.684 kg

DRUGS (1)
  1. CUROSURF [Suspect]
     Indication: NEONATAL RESPIRATORY DISTRESS SYNDROME

REACTIONS (8)
  - ADRENAL INSUFFICIENCY NEONATAL [None]
  - ANAEMIA NEONATAL [None]
  - BACTERAEMIA [None]
  - HYPERTENSION NEONATAL [None]
  - NEONATAL DISORDER [None]
  - PNEUMOTHORAX [None]
  - PULMONARY EMBOLISM [None]
  - PULMONARY HAEMORRHAGE [None]
